FAERS Safety Report 10754502 (Version 2)
Quarter: 2015Q1

REPORT INFORMATION
  Report Type: Spontaneous
  Country: TH (occurrence: TH)
  Receive Date: 20150202
  Receipt Date: 20150224
  Transmission Date: 20150721
  Serious: Yes (Other)
  Sender: FDA-Public Use
  Company Number: TH-JNJFOC-20150114882

PATIENT

DRUGS (1)
  1. RISPERIDONE. [Suspect]
     Active Substance: RISPERIDONE
     Indication: DELIRIUM
     Route: 048

REACTIONS (7)
  - Extrapyramidal disorder [Unknown]
  - Sedation [Unknown]
  - Respiratory disorder [Unknown]
  - Nausea [Unknown]
  - Delirium [Unknown]
  - Hypotension [Unknown]
  - Vomiting [Unknown]
